FAERS Safety Report 21690655 (Version 1)
Quarter: 2022Q4

REPORT INFORMATION
  Report Type: Report from Study
  Country: US (occurrence: US)
  Receive Date: 20221206
  Receipt Date: 20221206
  Transmission Date: 20230112
  Serious: No
  Sender: FDA-Public Use
  Company Number: US-ABBVIE-4192697

PATIENT
  Sex: Female

DRUGS (1)
  1. HUMIRA [Suspect]
     Active Substance: ADALIMUMAB
     Indication: Psoriatic arthropathy
     Dosage: STRENGTH: 40 MG
     Route: 058

REACTIONS (6)
  - Irritable bowel syndrome [Unknown]
  - Hypersensitivity [Unknown]
  - Arthritis [Unknown]
  - Dyspnoea [Unknown]
  - Cough [Unknown]
  - Mast cell activation syndrome [Unknown]
